FAERS Safety Report 8907196 (Version 2)
Quarter: 2012Q4

REPORT INFORMATION
  Report Type: 
  Country: US (occurrence: US)
  Receive Date: 20121114
  Receipt Date: 20121220
  Transmission Date: 20130627
  Serious: Yes (Hospitalization, Other)
  Sender: FDA-Public Use
  Company Number: US-FRI-1000040158

PATIENT
  Age: 2 None
  Sex: Female

DRUGS (1)
  1. VIIBRYD [Suspect]
     Dosage: 80 MG
     Route: 048
     Dates: start: 20121023, end: 20121023

REACTIONS (9)
  - Accidental exposure to product [Recovered/Resolved]
  - Vomiting [Not Recovered/Not Resolved]
  - Diarrhoea [Not Recovered/Not Resolved]
  - Mydriasis [Recovered/Resolved]
  - Tremor [Recovered/Resolved]
  - Lethargy [Recovered/Resolved]
  - Hepatic enzyme increased [Not Recovered/Not Resolved]
  - Nausea [Not Recovered/Not Resolved]
  - Pyrexia [Not Recovered/Not Resolved]
